FAERS Safety Report 5622818-X (Version None)
Quarter: 2008Q1

REPORT INFORMATION
  Report Type: 
  Country: None (occurrence: None)
  Receive Date: 20080212
  Receipt Date: 20080208
  Transmission Date: 20080703
  Serious: Yes (Hospitalization)
  Sender: FDA-Public Use
  Company Number: JP-BRISTOL-MYERS SQUIBB COMPANY-13881115

PATIENT
  Age: 64 Year
  Sex: Male
  Weight: 64 kg

DRUGS (9)
  1. CISPLATIN [Suspect]
     Indication: PLEURAL MESOTHELIOMA MALIGNANT
     Route: 042
     Dates: start: 20070605, end: 20071023
  2. ALIMTA [Suspect]
     Indication: PLEURAL MESOTHELIOMA MALIGNANT
     Route: 042
     Dates: start: 20070605, end: 20071023
  3. PANVITAN [Concomitant]
     Dates: start: 20070528, end: 20071115
  4. CYANOCOBALAMIN [Concomitant]
     Dates: start: 20070528, end: 20071105
  5. PROTECADIN [Concomitant]
  6. SEROTONE [Concomitant]
     Indication: PROPHYLAXIS
     Dates: start: 20070605, end: 20070719
  7. BETAMETHASONE [Concomitant]
     Indication: PROPHYLAXIS
     Dates: start: 20070605, end: 20070719
  8. ROHYPNOL [Concomitant]
     Dates: start: 20070605, end: 20070719
  9. NAUZELIN [Concomitant]
     Dates: start: 20070605, end: 20070719

REACTIONS (3)
  - BONE MARROW FAILURE [None]
  - HYPERKALAEMIA [None]
  - RENAL IMPAIRMENT [None]
